FAERS Safety Report 17544478 (Version 4)
Quarter: 2020Q4

REPORT INFORMATION
  Report Type: Spontaneous
  Country: DE (occurrence: DE)
  Receive Date: 20200316
  Receipt Date: 20201111
  Transmission Date: 20210113
  Serious: Yes (Other)
  Sender: FDA-Public Use
  Company Number: DE-PFIZER INC-2020105926

PATIENT
  Sex: Male

DRUGS (25)
  1. LOSARTAN COMP CT [Concomitant]
     Active Substance: HYDROCHLOROTHIAZIDE\LOSARTAN POTASSIUM
     Dosage: 1 DF, UNK (50/12.5, N3-98)
     Dates: start: 20180721, end: 20180906
  2. VALOSARTAN [Concomitant]
     Active Substance: VALSARTAN
     Dosage: 1 DF, 80/12.5
     Dates: start: 20151126, end: 20160127
  3. VALOSARTAN [Concomitant]
     Active Substance: VALSARTAN
     Dosage: 1 DF, 80/12.5
     Dates: start: 20171218, end: 20180315
  4. VALOSARTAN [Concomitant]
     Active Substance: VALSARTAN
     Dosage: 1 DF, 80/12.5
     Dates: start: 20180316, end: 20180515
  5. DEKRISTOL [Concomitant]
     Active Substance: CHOLECALCIFEROL
     Dosage: UNK
     Dates: start: 20141230
  6. LOSARTAN 1 A PHARMA [Suspect]
     Active Substance: LOSARTAN POTASSIUM
     Indication: HYPERTENSION
     Dosage: 50 MG
     Dates: start: 20180907, end: 20180919
  7. VALOSARTAN [Concomitant]
     Active Substance: VALSARTAN
     Dosage: 0.5 DF, 160/12.5
     Dates: start: 20160128, end: 20160605
  8. VALSARTAN HEXAL [Suspect]
     Active Substance: VALSARTAN
     Indication: HYPERTENSION
     Dosage: 0.5 DF (STRENGTH 160 MG) , 1X/DAY (0.5-0-0)
     Dates: start: 20160128, end: 20171217
  9. DIOVAN [Suspect]
     Active Substance: VALSARTAN
     Indication: HYPERTENSION
     Dosage: 80 MG
     Dates: start: 20190115
  10. VALOSARTAN [Concomitant]
     Active Substance: VALSARTAN
     Dosage: 0.5 DF, 160/12.5
     Dates: start: 20161010, end: 20170215
  11. VALSACOR [Concomitant]
     Active Substance: VALSARTAN
     Dosage: 1 DF
     Dates: start: 20181031, end: 20181102
  12. EXFORGE [Concomitant]
     Active Substance: AMLODIPINE BESYLATE\VALSARTAN
     Dosage: 0.5 DF, UNK (5/160, N3-98)
     Dates: start: 20181128, end: 20181205
  13. VALSACOR [Concomitant]
     Active Substance: VALSARTAN
     Dosage: 1 DF
     Dates: start: 20181103, end: 20181114
  14. ALLOPURINOL. [Concomitant]
     Active Substance: ALLOPURINOL
     Dosage: UNK
     Dates: start: 20140924, end: 20171029
  15. AMLODIPINE BESILATE [Suspect]
     Active Substance: AMLODIPINE BESYLATE
     Indication: HYPERTENSION
     Dosage: UNK
     Dates: start: 20181115, end: 20181127
  16. VALSARTAN HEXAL [Suspect]
     Active Substance: VALSARTAN
     Dosage: 1 DF, 1X/DAY (1-0-0) (STRENGTH 80 MG)
     Dates: start: 20171218, end: 20180721
  17. VALOSARTAN [Concomitant]
     Active Substance: VALSARTAN
     Dosage: 1 DF, 80/12.5
     Dates: start: 20170619, end: 20170913
  18. VALOSARTAN [Concomitant]
     Active Substance: VALSARTAN
     Dosage: 1 DF, 80/12.5
     Dates: start: 20170914, end: 20171217
  19. VALSACOR [Concomitant]
     Active Substance: VALSARTAN
     Dosage: 0.5 DF
     Dates: start: 20181206, end: 20190114
  20. BIPRETERAX [INDAPAMIDE;PERINDOPRIL ERBUMINE] [Concomitant]
     Active Substance: INDAPAMIDE\PERINDOPRIL ERBUMINE
     Dosage: 1 DF, 5/1.25, N1-30
     Dates: start: 20181016, end: 20181029
  21. VALOSARTAN [Concomitant]
     Active Substance: VALSARTAN
     Dosage: 0.5 DF, 160/12.5
     Dates: start: 20160606, end: 20161009
  22. VALSACOR [Concomitant]
     Active Substance: VALSARTAN
     Dosage: 0.5 DF
     Dates: start: 20181206, end: 20190114
  23. DELIX [RAMIPRIL] [Concomitant]
     Active Substance: RAMIPRIL
     Dosage: 1 DF, UNK (5, N2-45)
     Dates: start: 20180925, end: 20181015
  24. DEKRISTOL [Concomitant]
     Active Substance: CHOLECALCIFEROL
     Dosage: UNK
  25. VALOSARTAN [Concomitant]
     Active Substance: VALSARTAN
     Dosage: 1 DF, 80/12.5
     Dates: start: 20180516, end: 20180719

REACTIONS (23)
  - Apathy [Not Recovered/Not Resolved]
  - Pathological doubt [Not Recovered/Not Resolved]
  - Anxiety [Not Recovered/Not Resolved]
  - Lipase increased [Unknown]
  - Chest discomfort [Unknown]
  - Thinking abnormal [Not Recovered/Not Resolved]
  - Heart rate increased [Unknown]
  - Throat clearing [Unknown]
  - Feeling hot [Unknown]
  - Renal impairment [Unknown]
  - Mental disorder [Not Recovered/Not Resolved]
  - Fear of death [Not Recovered/Not Resolved]
  - Nervousness [Not Recovered/Not Resolved]
  - Secretion discharge [Unknown]
  - Myalgia [Recovered/Resolved]
  - Restlessness [Not Recovered/Not Resolved]
  - Anger [Not Recovered/Not Resolved]
  - Altered state of consciousness [Unknown]
  - Pain [Unknown]
  - Fear of disease [Not Recovered/Not Resolved]
  - Somnolence [Recovered/Resolved]
  - Blood creatinine increased [Unknown]
  - Emotional distress [Unknown]

NARRATIVE: CASE EVENT DATE: 201601
